FAERS Safety Report 15552562 (Version 3)
Quarter: 2018Q4

REPORT INFORMATION
  Report Type: Spontaneous
  Country: US (occurrence: US)
  Receive Date: 20181025
  Receipt Date: 20181226
  Transmission Date: 20190205
  Serious: Yes (Hospitalization)
  Sender: FDA-Public Use
  Company Number: US-CELGENEUS-USA-20181006336

PATIENT
  Age: 61 Year
  Sex: Female
  Weight: 88.08 kg

DRUGS (3)
  1. ROMIDEPSIN. [Suspect]
     Active Substance: ROMIDEPSIN
     Indication: BREAST CANCER METASTATIC
     Dosage: 8 MILLIGRAM/SQ. METER
     Route: 041
     Dates: start: 20181010, end: 20181010
  2. CISPLATIN. [Suspect]
     Active Substance: CISPLATIN
     Indication: BREAST CANCER METASTATIC
     Dosage: 75 MILLIGRAM/SQ. METER
     Route: 041
     Dates: start: 20181011, end: 20181011
  3. NIVOLUMAB [Concomitant]
     Active Substance: NIVOLUMAB
     Indication: PRODUCT USED FOR UNKNOWN INDICATION
     Dosage: 360 MILLIGRAM
     Route: 041
     Dates: start: 20181010, end: 20181010

REACTIONS (2)
  - Cerebrovascular accident [Unknown]
  - Metastases to central nervous system [Unknown]

NARRATIVE: CASE EVENT DATE: 20181013
